FAERS Safety Report 13519764 (Version 3)
Quarter: 2017Q3

REPORT INFORMATION
  Report Type: Spontaneous
  Country: IE (occurrence: IE)
  Receive Date: 20170506
  Receipt Date: 20170725
  Transmission Date: 20171127
  Serious: Yes (Hospitalization)
  Sender: FDA-Public Use
  Company Number: IE-ABBVIE-17K-229-1963281-00

PATIENT
  Age: 33 Year
  Sex: Female

DRUGS (6)
  1. METRONIDAZOLE. [Concomitant]
     Active Substance: METRONIDAZOLE
     Indication: PRODUCT USED FOR UNKNOWN INDICATION
  2. ERTAPENEM [Concomitant]
     Active Substance: ERTAPENEM
     Indication: PRODUCT USED FOR UNKNOWN INDICATION
     Dosage: DAILY
  3. VEDOLIZUMAB [Concomitant]
     Active Substance: VEDOLIZUMAB
     Indication: GASTROINTESTINAL DISORDER
     Dosage: 6-8 WEEKLY
     Route: 042
  4. ERTAPENEM [Concomitant]
     Active Substance: ERTAPENEM
  5. HUMIRA [Suspect]
     Active Substance: ADALIMUMAB
     Indication: CROHN^S DISEASE
     Route: 058
  6. METHOTREXATE. [Concomitant]
     Active Substance: METHOTREXATE
     Indication: GASTROINTESTINAL DISORDER

REACTIONS (3)
  - Female genital tract fistula [Unknown]
  - Anorectal cellulitis [Unknown]
  - Drug ineffective [Unknown]
